FAERS Safety Report 4476053-1 (Version None)
Quarter: 2004Q4

REPORT INFORMATION
  Report Type: 
  Country: None (occurrence: None)
  Receive Date: 20041014
  Receipt Date: 20041014
  Transmission Date: 20050328
  Serious: Yes (Other)
  Sender: FDA-Public Use
  Company Number: None

PATIENT
  Age: 81 Year
  Sex: Female
  Weight: 85.2762 kg

DRUGS (2)
  1. REMERON [Suspect]
     Indication: ANXIETY
     Dosage: 30 MG P.O. DAILY
     Route: 048
     Dates: start: 20040501
  2. REMERON [Suspect]
     Indication: DEPRESSION
     Dosage: 30 MG P.O. DAILY
     Route: 048
     Dates: start: 20040501

REACTIONS (5)
  - DECREASED APPETITE [None]
  - DYSGEUSIA [None]
  - DYSPHAGIA [None]
  - GASTRIC DISORDER [None]
  - PHARMACEUTICAL PRODUCT COMPLAINT [None]
